FAERS Safety Report 13882126 (Version 1)
Quarter: 2017Q3

REPORT INFORMATION
  Report Type: Spontaneous
  Country: FR (occurrence: FR)
  Receive Date: 20170818
  Receipt Date: 20170818
  Transmission Date: 20171127
  Serious: Yes (Hospitalization, Other)
  Sender: FDA-Public Use
  Company Number: FR-AMGEN-FRASP2017122277

PATIENT
  Age: 79 Year
  Sex: Male

DRUGS (3)
  1. ARANESP [Suspect]
     Active Substance: DARBEPOETIN ALFA
     Indication: APLASTIC ANAEMIA
     Dosage: 150 MUG, QWK
     Route: 058
     Dates: start: 20170707, end: 20170713
  2. RIFAMPICIN [Concomitant]
     Active Substance: RIFAMPIN
     Dosage: UNK
     Dates: start: 20170616, end: 20170718
  3. DALACIN [Concomitant]
     Active Substance: CLINDAMYCIN
     Dosage: UNK
     Dates: start: 20170627, end: 20170718

REACTIONS (3)
  - Eosinophilia [Recovered/Resolved]
  - Rash maculo-papular [Recovering/Resolving]
  - Acute kidney injury [Not Recovered/Not Resolved]

NARRATIVE: CASE EVENT DATE: 20170715
